FAERS Safety Report 8734219 (Version 2)
Quarter: 2012Q4

REPORT INFORMATION
  Report Type: 
  Country: GT (occurrence: GT)
  Receive Date: 20120821
  Receipt Date: 20120918
  Transmission Date: 20130627
  Serious: No
  Sender: FDA-Public Use
  Company Number: GT-PFIZER INC-2012200998

PATIENT
  Age: 10 Year
  Sex: Female

DRUGS (1)
  1. GENOTROPIN [Suspect]
     Dosage: 1 mg, 1x/day
     Dates: start: 201204, end: 20120809

REACTIONS (1)
  - Headache [Unknown]
